FAERS Safety Report 13031014 (Version 2)
Quarter: 2016Q4

REPORT INFORMATION
  Report Type: Spontaneous
  Country: None (occurrence: US)
  Receive Date: 20161215
  Receipt Date: 20161222
  Transmission Date: 20170207
  Serious: Yes (Hospitalization)
  Sender: FDA-Public Use
  Company Number: US-RARE DISEASE THERAPEUTICS, INC.-1060856

PATIENT
  Age: 6 Year
  Sex: Male
  Weight: 19.05 kg

DRUGS (6)
  1. VITAMIN D [Concomitant]
     Active Substance: CHOLECALCIFEROL
  2. LEVOCARNITINE. [Concomitant]
     Active Substance: LEVOCARNITINE
  3. CYSTADANE [Suspect]
     Active Substance: BETAINE
     Indication: VITAMIN B12 DEFICIENCY
  4. CYSTADANE [Suspect]
     Active Substance: BETAINE
     Dates: start: 20140821
  5. PROPIMEX-2 [Concomitant]
  6. HYDROXOCOBALAMIN [Concomitant]
     Active Substance: HYDROXOCOBALAMIN

REACTIONS (2)
  - Gastroenteritis viral [Recovered/Resolved]
  - Overdose [None]

NARRATIVE: CASE EVENT DATE: 20161125
